FAERS Safety Report 6355179-1 (Version None)
Quarter: 2009Q3

REPORT INFORMATION
  Report Type: 
  Country: None (occurrence: None)
  Receive Date: 20090914
  Receipt Date: 20090909
  Transmission Date: 20100115
  Serious: Yes (Death, Hospitalization)
  Sender: FDA-Public Use
  Company Number: FR-WYE-G03877409

PATIENT
  Sex: Male
  Weight: 64 kg

DRUGS (8)
  1. TORISEL [Suspect]
     Indication: METASTATIC RENAL CELL CARCINOMA
     Route: 042
     Dates: start: 20090514
  2. SOLU-MEDROL [Concomitant]
     Dosage: 60 MG TOTAL DAILY
     Route: 042
  3. TAVANIC [Concomitant]
     Route: 048
  4. SEROPLEX [Concomitant]
     Route: 048
  5. LYRICA [Concomitant]
     Route: 048
  6. INEXIUM [Concomitant]
     Dosage: 40 MG TOTAL DAILY
     Route: 048
  7. EXACYL [Concomitant]
     Dosage: 3 G TOTAL DAILY
     Route: 042
  8. DAFLON [Concomitant]
     Dosage: 2 TABLETS TOTAL DAILY
     Route: 048

REACTIONS (9)
  - ASTHENIA [None]
  - BRAIN OEDEMA [None]
  - DISEASE PROGRESSION [None]
  - DISTURBANCE IN ATTENTION [None]
  - FAECAL VOMITING [None]
  - FALL [None]
  - GENERAL PHYSICAL HEALTH DETERIORATION [None]
  - MELAENA [None]
  - NAUSEA [None]
